FAERS Safety Report 7290659-6 (Version None)
Quarter: 2011Q1

REPORT INFORMATION
  Report Type: 
  Country: None (occurrence: None)
  Receive Date: 20110214
  Receipt Date: 20110204
  Transmission Date: 20110831
  Serious: Yes (Other)
  Sender: FDA-Public Use
  Company Number: CA-ASTRAZENECA-2011SE03176

PATIENT
  Age: 63 Year
  Sex: Male

DRUGS (4)
  1. SYMBICORT [Suspect]
     Dosage: 400-800 MCG DAILY-1 TO 2 INHALATIONS TWO TIMES A DAY
     Route: 055
     Dates: start: 20110103
  2. SYMBICORT [Suspect]
     Route: 055
  3. SYMBICORT [Suspect]
     Route: 055
  4. SYMBICORT [Suspect]
     Route: 055
     Dates: start: 20101217, end: 20110103

REACTIONS (1)
  - DYSPNOEA [None]
